FAERS Safety Report 5223807-X (Version None)
Quarter: 2007Q1

REPORT INFORMATION
  Report Type: 
  Country: None (occurrence: None)
  Receive Date: 20070130
  Receipt Date: 20070118
  Transmission Date: 20070707
  Serious: Yes (Other)
  Sender: FDA-Public Use
  Company Number: PHBS2007BE01149

PATIENT
  Age: 59 Year
  Sex: Female
  Weight: 53 kg

DRUGS (5)
  1. ZOMETA [Suspect]
     Indication: METASTASES TO BONE
     Dosage: 4 MG, MONTHLY
     Route: 042
     Dates: start: 20040210, end: 20060727
  2. ULTRA KALIUM [Concomitant]
     Dosage: UNK, BID
     Route: 065
  3. STEOVIT D3 [Concomitant]
     Dosage: 400 MG/D
     Route: 065
  4. ZOLPIDEM TARTRATE [Concomitant]
     Dosage: 0.5 DF/D
     Route: 065
  5. XELODA [Concomitant]
     Dosage: 2500 MG/M2, 3 WEEKS
     Route: 065

REACTIONS (4)
  - BONE DEBRIDEMENT [None]
  - IMPAIRED HEALING [None]
  - OSTEONECROSIS [None]
  - TOOTH EXTRACTION [None]
